FAERS Safety Report 6257497-4 (Version None)
Quarter: 2009Q3

REPORT INFORMATION
  Report Type: 
  Country: None (occurrence: None)
  Receive Date: 20090706
  Receipt Date: 20090624
  Transmission Date: 20100115
  Serious: Yes (Disabling)
  Sender: FDA-Public Use
  Company Number: CH-ROCHE-640205

PATIENT
  Age: 40 Year
  Sex: Female

DRUGS (6)
  1. ROACCUTAN [Suspect]
     Indication: ACNE
     Route: 048
     Dates: start: 20040601, end: 20050401
  2. TRETINAC [Suspect]
     Indication: ACNE
     Route: 048
     Dates: start: 20060101
  3. FOLVITE [Concomitant]
     Route: 048
     Dates: start: 20060501
  4. CALCIMAGON [Concomitant]
     Dates: start: 20090201
  5. LAMICTAL [Concomitant]
     Route: 048
     Dates: start: 20040501
  6. TEGRETOL [Concomitant]
     Indication: EPILEPSY
     Dates: start: 20001201, end: 20040701

REACTIONS (1)
  - OSTEONECROSIS [None]
